FAERS Safety Report 7643066-8 (Version None)
Quarter: 2011Q3

REPORT INFORMATION
  Report Type: 
  Country: None (occurrence: None)
  Receive Date: 20110728
  Receipt Date: 20110719
  Transmission Date: 20111222
  Serious: Yes (Hospitalization)
  Sender: FDA-Public Use
  Company Number: US-AMGEN-USASP2011036801

PATIENT
  Age: 77 Year
  Sex: Female

DRUGS (2)
  1. ENBREL [Suspect]
     Indication: RHEUMATOID ARTHRITIS
     Dosage: 50 MG, QWK
     Dates: start: 20010101
  2. METHOTREXATE [Concomitant]
     Dosage: 4 MG, QWK
     Dates: start: 20110101

REACTIONS (6)
  - RASH PRURITIC [None]
  - OEDEMA PERIPHERAL [None]
  - ASTHENIA [None]
  - KNEE ARTHROPLASTY [None]
  - SINUS DISORDER [None]
  - PNEUMONIA [None]
